FAERS Safety Report 9154667 (Version 1)
Quarter: 2013Q1

REPORT INFORMATION
  Report Type: Report from Study
  Country: US (occurrence: US)
  Receive Date: 20130311
  Receipt Date: 20130311
  Transmission Date: 20140127
  Serious: No
  Sender: FDA-Public Use
  Company Number: US-ABBOTT-13P-163-1031236-00

PATIENT
  Age: 30 None
  Sex: Female
  Weight: 96.25 kg

DRUGS (3)
  1. LUPRON DEPOT [Suspect]
     Indication: ENDOMETRIOSIS
     Route: 030
     Dates: start: 2007
  2. LUPRON DEPOT [Suspect]
     Route: 030
     Dates: start: 20120927
  3. ZYRTEC [Concomitant]
     Indication: HYPERSENSITIVITY
     Route: 048

REACTIONS (10)
  - Injection site pain [Not Recovered/Not Resolved]
  - Chills [Unknown]
  - Hot flush [Unknown]
  - Headache [Unknown]
  - Chills [Not Recovered/Not Resolved]
  - Hot flush [Not Recovered/Not Resolved]
  - Nausea [Recovered/Resolved]
  - Vomiting [Recovered/Resolved]
  - Pyrexia [Unknown]
  - Viral infection [Unknown]
